FAERS Safety Report 16855572 (Version 1)
Quarter: 2019Q3

REPORT INFORMATION
  Report Type: Spontaneous
  Country: GB (occurrence: GB)
  Receive Date: 20190926
  Receipt Date: 20190926
  Transmission Date: 20191005
  Serious: Yes (Other)
  Sender: FDA-Public Use
  Company Number: GB-TEVA-2019-GB-1110953

PATIENT
  Sex: Female

DRUGS (1)
  1. PREDNISOLONE 5MG TABLETS (ACTAVIS) [Suspect]
     Active Substance: PREDNISOLONE
     Indication: PRODUCT USED FOR UNKNOWN INDICATION
     Route: 048

REACTIONS (4)
  - Pituitary-dependent Cushing^s syndrome [Not Recovered/Not Resolved]
  - Cushingoid [Not Recovered/Not Resolved]
  - Fat tissue increased [Not Recovered/Not Resolved]
  - Skin atrophy [Not Recovered/Not Resolved]
